FAERS Safety Report 13931648 (Version 1)
Quarter: 2017Q3

REPORT INFORMATION
  Report Type: Spontaneous
  Country: DE (occurrence: DE)
  Receive Date: 20170904
  Receipt Date: 20170904
  Transmission Date: 20171127
  Serious: Yes (Congenital Anomaly)
  Sender: FDA-Public Use
  Company Number: DE-TORRENT-00007019

PATIENT
  Age: 1 Day
  Sex: Male
  Weight: 4 kg

DRUGS (5)
  1. AKINETON [Concomitant]
     Active Substance: BIPERIDEN HYDROCHLORIDE
  2. ABILIFY [Suspect]
     Active Substance: ARIPIPRAZOLE
  3. GRIPPEIMPFSTOFF [Concomitant]
     Active Substance: INFLUENZA VIRUS VACCINE
  4. FERROUS FUMARATE [Concomitant]
     Active Substance: FERROUS FUMARATE
  5. QUETIAPINE. [Suspect]
     Active Substance: QUETIAPINE

REACTIONS (6)
  - Aortic stenosis [Unknown]
  - Foetal exposure during pregnancy [Unknown]
  - Large for dates baby [Recovered/Resolved]
  - Transposition of the great vessels [Unknown]
  - Ventricular septal defect [Unknown]
  - Atrial septal defect [Unknown]

NARRATIVE: CASE EVENT DATE: 20170104
